FAERS Safety Report 24156486 (Version 3)
Quarter: 2024Q4

REPORT INFORMATION
  Report Type: Spontaneous
  Country: NO (occurrence: NO)
  Receive Date: 20240731
  Receipt Date: 20241204
  Transmission Date: 20250114
  Serious: Yes (Other)
  Sender: TEVA
  Company Number: None

PATIENT
  Age: 31 Year
  Sex: Female
  Weight: 79 kg

DRUGS (6)
  1. TRAMADOL [Interacting]
     Active Substance: TRAMADOL
     Indication: Analgesic therapy
     Dosage: TRAMADOL HYDROCHLORIDE
     Route: 065
  2. KETAMINE [Interacting]
     Active Substance: KETAMINE
     Indication: Analgesic therapy
     Route: 065
  3. FENTANYL [Interacting]
     Active Substance: FENTANYL
     Indication: Analgesic therapy
     Dosage: UNK
     Route: 062
  4. NEURONTIN [Concomitant]
     Active Substance: GABAPENTIN
     Indication: Pain in extremity
     Route: 065
  5. MORPHINE [Interacting]
     Active Substance: MORPHINE
     Indication: Analgesic therapy
     Route: 065
  6. BUPROPION HYDROCHLORIDE\NALTREXONE HYDROCHLORIDE [Interacting]
     Active Substance: BUPROPION HYDROCHLORIDE\NALTREXONE HYDROCHLORIDE
     Indication: Overweight
     Route: 048
     Dates: start: 202309

REACTIONS (2)
  - Inadequate analgesia [Not Recovered/Not Resolved]
  - Pain [Not Recovered/Not Resolved]

NARRATIVE: CASE EVENT DATE: 20240110
